FAERS Safety Report 5273702-5 (Version None)
Quarter: 2007Q1

REPORT INFORMATION
  Report Type: 
  Country: None (occurrence: None)
  Receive Date: 20070323
  Receipt Date: 20070319
  Transmission Date: 20070707
  Serious: Yes (Hospitalization, Other)
  Sender: FDA-Public Use
  Company Number: HQWYE618529JUL04

PATIENT
  Sex: Female
  Weight: 59.02 kg

DRUGS (1)
  1. PREMPRO [Suspect]
     Dosage: UNKNOWN
     Dates: end: 20020301

REACTIONS (1)
  - BREAST CANCER METASTATIC [None]
